FAERS Safety Report 5343828-6 (Version None)
Quarter: 2007Q2

REPORT INFORMATION
  Report Type: 
  Country: None (occurrence: None)
  Receive Date: 20070416
  Receipt Date: 20070130
  Transmission Date: 20071010
  Serious: No
  Sender: FDA-Public Use
  Company Number: 2007SP000343

PATIENT
  Age: 25 Year
  Sex: Female
  Weight: 51.2565 kg

DRUGS (7)
  1. LUNESTA [Suspect]
     Indication: INSOMNIA
     Dosage: 2 MG; HS; ORAL
     Route: 048
     Dates: start: 20070127
  2. EFFEXOR [Concomitant]
  3. LAMOTRIGINE [Concomitant]
  4. ORAL CONTRACEPTIVE NOS [Concomitant]
  5. SPIRONOLACTONE [Concomitant]
  6. ASACOL [Concomitant]
  7. VITAMIN CAP [Concomitant]

REACTIONS (2)
  - INSOMNIA [None]
  - SOMNOLENCE [None]
